FAERS Safety Report 4764642-6 (Version None)
Quarter: 2005Q3

REPORT INFORMATION
  Report Type: 
  Country: None (occurrence: None)
  Receive Date: 20050909
  Receipt Date: 20050610
  Transmission Date: 20060218
  Serious: Yes (Hospitalization)
  Sender: FDA-Public Use
  Company Number: FR-GLAXOSMITHKLINE-B0384534A

PATIENT
  Age: 59 Year
  Sex: Female
  Weight: 85 kg

DRUGS (8)
  1. AVANDIA [Suspect]
     Indication: DIABETES MELLITUS NON-INSULIN-DEPENDENT
     Route: 048
     Dates: start: 20050424
  2. GLUCOPHAGE [Suspect]
     Indication: DIABETES MELLITUS NON-INSULIN-DEPENDENT
     Dosage: 1000MG THREE TIMES PER DAY
     Route: 048
  3. TRIATEC [Concomitant]
     Indication: HYPERTENSION
     Dosage: 2.5MG PER DAY
     Route: 048
  4. ANTIBIOTIC [Concomitant]
     Indication: TONSILLITIS
     Route: 048
  5. SOPROL [Concomitant]
     Indication: HYPERTENSION
     Dosage: 10MG PER DAY
     Route: 048
  6. KARDEGIC [Concomitant]
     Dosage: 75MG PER DAY
     Route: 048
  7. TAHOR [Concomitant]
     Indication: HYPERLIPIDAEMIA
     Dosage: 40MG PER DAY
     Route: 048
  8. OGAST [Concomitant]
     Indication: GASTROOESOPHAGEAL REFLUX DISEASE
     Route: 048

REACTIONS (3)
  - DIABETES MELLITUS INADEQUATE CONTROL [None]
  - GLYCOSYLATED HAEMOGLOBIN INCREASED [None]
  - HYPERGLYCAEMIA [None]
